FAERS Safety Report 10173972 (Version 1)
Quarter: 2014Q2

REPORT INFORMATION
  Report Type: Spontaneous
  Country: US (occurrence: US)
  Receive Date: 20140515
  Receipt Date: 20140515
  Transmission Date: 20141212
  Serious: Yes (Hospitalization)
  Sender: FDA-Public Use
  Company Number: US-DRREDDYS-USA/USA/14/0040307

PATIENT
  Sex: Male

DRUGS (2)
  1. FONDAPARINUX SODIUM 10 MG/0.8 ML [Suspect]
     Indication: HYPERCOAGULATION
     Route: 058
     Dates: start: 201211
  2. FONDAPARINUX SODIUM 10 MG/0.8 ML [Suspect]
     Indication: PROTEIN DEFICIENCY

REACTIONS (7)
  - Thrombosis [Recovered/Resolved]
  - Fatigue [Recovered/Resolved]
  - Depression [Recovered/Resolved]
  - Asthenia [Recovered/Resolved]
  - Drug ineffective [Unknown]
  - Product quality issue [Unknown]
  - Product substitution issue [None]
